FAERS Safety Report 25866064 (Version 4)
Quarter: 2025Q4

REPORT INFORMATION
  Report Type: Spontaneous
  Country: US (occurrence: US)
  Receive Date: 20250930
  Receipt Date: 20251222
  Transmission Date: 20260117
  Serious: Yes (Death)
  Sender: MERCK SHARP & DOHME LLC
  Company Number: US-009507513-2332401

PATIENT
  Sex: Male

DRUGS (2)
  1. MOLNUPIRAVIR [Suspect]
     Active Substance: MOLNUPIRAVIR
     Indication: COVID-19 treatment
     Dosage: 4 CAPSULES EVERY 12 HOURS FOR 5 DAYS. STRENGTH: 200MG
     Route: 048
     Dates: start: 202409, end: 202409
  2. MOLNUPIRAVIR [Suspect]
     Active Substance: MOLNUPIRAVIR
     Indication: COVID-19 treatment
     Dosage: 4 CAPSULES EVERY 12 HOURS FOR 5 DAYS. STRENGTH: 200MG
     Route: 048
     Dates: start: 202409, end: 202409

REACTIONS (6)
  - Death [Fatal]
  - Suspected product contamination [Unknown]
  - Expired product administered [Unknown]
  - Product dispensing error [Unknown]
  - Poor quality product administered [Unknown]
  - Product dispensing error [Unknown]

NARRATIVE: CASE EVENT DATE: 20240901
